FAERS Safety Report 6793900-9 (Version None)
Quarter: 2010Q2

REPORT INFORMATION
  Report Type: 
  Country: None (occurrence: None)
  Receive Date: 20100624
  Receipt Date: 20090310
  Transmission Date: 20101027
  Serious: Yes (Other)
  Sender: FDA-Public Use
  Company Number: US-PFIZER INC-2009181289

PATIENT
  Sex: Female
  Weight: 63.5 kg

DRUGS (3)
  1. PROVERA [Suspect]
     Indication: MENORRHAGIA
     Dosage: UNK
     Route: 048
     Dates: start: 19760701, end: 19761001
  2. PREMARIN [Suspect]
     Indication: HOT FLUSH
     Dosage: UNK
     Route: 048
     Dates: start: 19770327, end: 19880926
  3. ESTRADERM [Suspect]
     Indication: HOT FLUSH
     Dosage: UNK
     Route: 048
     Dates: start: 19880901, end: 20010701

REACTIONS (1)
  - BREAST CANCER FEMALE [None]
